FAERS Safety Report 18423522 (Version 1)
Quarter: 2020Q4

REPORT INFORMATION
  Report Type: Spontaneous
  Country: JP (occurrence: JP)
  Receive Date: 20201023
  Receipt Date: 20201023
  Transmission Date: 20210114
  Serious: Yes (Death, Other)
  Sender: FDA-Public Use
  Company Number: JP-009507513-2010JPN001826J

PATIENT
  Age: 4 Decade
  Sex: Male

DRUGS (1)
  1. PREVYMIS [Suspect]
     Active Substance: LETERMOVIR
     Indication: ANTIVIRAL PROPHYLAXIS
     Dosage: UNK
     Route: 041
     Dates: start: 202009, end: 202009

REACTIONS (1)
  - Chronic active Epstein-Barr virus infection [Fatal]

NARRATIVE: CASE EVENT DATE: 202009
